FAERS Safety Report 6313450-3 (Version None)
Quarter: 2009Q3

REPORT INFORMATION
  Report Type: 
  Country: None (occurrence: None)
  Receive Date: 20090814
  Receipt Date: 20090814
  Transmission Date: 20100115
  Serious: Yes (Disabling, Other)
  Sender: FDA-Public Use
  Company Number: None

PATIENT
  Sex: Male

DRUGS (1)
  1. IMITREX [Suspect]

REACTIONS (5)
  - CHEST PAIN [None]
  - DRUG EFFECT DECREASED [None]
  - HYPERHIDROSIS [None]
  - MIGRAINE [None]
  - TACHYCARDIA [None]
